FAERS Safety Report 4552690-0 (Version None)
Quarter: 2005Q1

REPORT INFORMATION
  Report Type: 
  Country: None (occurrence: None)
  Receive Date: 20050114
  Receipt Date: 20050104
  Transmission Date: 20050727
  Serious: Yes (Hospitalization)
  Sender: FDA-Public Use
  Company Number: 200510038FR

PATIENT
  Age: 93 Year
  Sex: Female

DRUGS (10)
  1. LASILIX 40 MG [Suspect]
     Indication: ESSENTIAL HYPERTENSION
     Route: 048
     Dates: end: 20040925
  2. TAREG [Suspect]
     Indication: ESSENTIAL HYPERTENSION
     Dosage: DOSE UNIT: UNITS
     Route: 048
     Dates: end: 20040925
  3. PREVISCAN 20 MG [Concomitant]
     Route: 048
  4. NITRIDERM TTS 10 MG/24 H [Concomitant]
     Indication: ANGINA PECTORIS
     Route: 023
  5. CORDARONE [Concomitant]
     Indication: CARDIAC DISORDER
     Route: 048
  6. MOPRAL [Concomitant]
     Indication: GASTRIC ULCER
     Route: 048
  7. DURAGESIC [Concomitant]
     Route: 023
  8. DITROPAN [Concomitant]
     Route: 048
  9. NPH INSULIN [Concomitant]
  10. FURADANTIN [Concomitant]
     Route: 048

REACTIONS (6)
  - DEHYDRATION [None]
  - FALL [None]
  - FRACTURE [None]
  - HYPOTENSION [None]
  - RENAL FAILURE [None]
  - SYNCOPE [None]
